FAERS Safety Report 9714833 (Version 1)
Quarter: 2013Q4

REPORT INFORMATION
  Report Type: Spontaneous
  Country: US (occurrence: US)
  Receive Date: 20131126
  Receipt Date: 20131126
  Transmission Date: 20140711
  Serious: Yes (Hospitalization, Other)
  Sender: FDA-Public Use
  Company Number: US-AMGEN-USASP2013082604

PATIENT
  Age: 55 Year
  Sex: Female

DRUGS (1)
  1. ENBREL [Suspect]
     Indication: RHEUMATOID ARTHRITIS
     Dosage: 50 MG, QWK
     Route: 065
     Dates: start: 20121130

REACTIONS (6)
  - Arthritis [Recovered/Resolved]
  - Abasia [Recovered/Resolved]
  - Blood glucose increased [Recovered/Resolved]
  - Diverticulitis [Not Recovered/Not Resolved]
  - Fungal infection [Recovered/Resolved]
  - Abdominal pain [Not Recovered/Not Resolved]
